FAERS Safety Report 9315723 (Version 1)
Quarter: 2013Q2

REPORT INFORMATION
  Report Type: Spontaneous
  Country: FR (occurrence: FR)
  Receive Date: 20130529
  Receipt Date: 20130529
  Transmission Date: 20140414
  Serious: Yes (Hospitalization)
  Sender: FDA-Public Use
  Company Number: PHHY2013FR053686

PATIENT
  Age: 22 Year
  Sex: Female

DRUGS (6)
  1. BACLOFEN [Suspect]
     Dosage: 0.5 DF, UNK
     Route: 048
     Dates: start: 2012
  2. BACLOFEN [Suspect]
     Dosage: 3 DF, TID
     Dates: end: 20120325
  3. TETRAZEPAM [Suspect]
     Dosage: UNK UKN, (UPTO 10 TABLETS DAILY)
     Route: 048
  4. ALPRAZOLAM [Suspect]
     Dosage: UNK UKN, (UPTO 40 TABLETS DAILY)
     Route: 048
  5. ACTISKENAN [Concomitant]
     Indication: FEELING OF RELAXATION
  6. ZOLOFT [Concomitant]

REACTIONS (1)
  - Dyskinesia [Recovered/Resolved]
